FAERS Safety Report 19310157 (Version 1)
Quarter: 2021Q2

REPORT INFORMATION
  Report Type: Spontaneous
  Country: US (occurrence: US)
  Receive Date: 20210526
  Receipt Date: 20210526
  Transmission Date: 20210717
  Serious: Yes (Other)
  Sender: FDA-Public Use
  Company Number: US-ALLERGAN-2119980US

PATIENT
  Sex: Male
  Weight: 82.99 kg

DRUGS (5)
  1. AVASTIN [Concomitant]
     Active Substance: BEVACIZUMAB
     Indication: COLON CANCER METASTATIC
     Dosage: UNK, Q2WEEKS
     Route: 042
     Dates: start: 202010
  2. LEUCOVORINE [Concomitant]
     Active Substance: LEUCOVORIN
     Indication: COLON CANCER METASTATIC
     Dosage: UNK UNK, Q2WEEKS
     Route: 042
     Dates: start: 202010
  3. REFRESH OPTIVE [Suspect]
     Active Substance: CARBOXYMETHYLCELLULOSE SODIUM\GLYCERIN
     Indication: DRY EYE
     Dosage: 4 GTT, QD
  4. IRINOTECAN [Concomitant]
     Active Substance: IRINOTECAN
     Indication: COLON CANCER METASTATIC
     Dosage: UNK UNK, Q2WEEKS
     Route: 042
     Dates: start: 202010
  5. FLUOROURACIL. [Concomitant]
     Active Substance: FLUOROURACIL
     Indication: COLON CANCER METASTATIC
     Dosage: UNK UNK, Q2WEEKS
     Dates: start: 202010

REACTIONS (7)
  - Eye irritation [Recovered/Resolved]
  - Abdominal cavity drainage [Unknown]
  - Kidney ablation [Unknown]
  - Product quality issue [Unknown]
  - Colon cancer metastatic [Not Recovered/Not Resolved]
  - Colon cancer [Unknown]
  - Abdominal distension [Unknown]

NARRATIVE: CASE EVENT DATE: 201711
